FAERS Safety Report 24139599 (Version 1)
Quarter: 2024Q3

REPORT INFORMATION
  Report Type: Report from Study
  Country: AT (occurrence: AT)
  Receive Date: 20240726
  Receipt Date: 20240726
  Transmission Date: 20241016
  Serious: Yes (Hospitalization, Other)
  Sender: AMGEN
  Company Number: AT-ABBVIE-22K-009-4328414-00

PATIENT
  Age: 26 Year
  Sex: Male

DRUGS (9)
  1. ADALIMUMAB [Suspect]
     Active Substance: ADALIMUMAB\ISOPROPYL ALCOHOL
     Indication: Crohn^s disease
     Dosage: 160 MILLIGRAM
     Route: 058
     Dates: start: 202106
  2. ADALIMUMAB [Suspect]
     Active Substance: ADALIMUMAB\ISOPROPYL ALCOHOL
     Dosage: 160 MILLIGRAM, Q2WK
     Route: 058
     Dates: start: 20210610, end: 20220407
  3. ADALIMUMAB [Suspect]
     Active Substance: ADALIMUMAB\ISOPROPYL ALCOHOL
     Dosage: UNK UNK, Q2WK
     Route: 058
  4. HUMIRA [Suspect]
     Active Substance: ADALIMUMAB
     Indication: Crohn^s disease
     Dosage: UNK
     Route: 058
     Dates: start: 2018
  5. HUMIRA [Suspect]
     Active Substance: ADALIMUMAB
     Indication: Dermatitis atopic
  6. RINVOQ [Suspect]
     Active Substance: UPADACITINIB
     Indication: Dermatitis atopic
     Dosage: UNK
     Route: 048
     Dates: start: 2022, end: 202308
  7. RINVOQ [Suspect]
     Active Substance: UPADACITINIB
     Dosage: UNK
     Route: 048
     Dates: start: 202312
  8. CLOBETASOL [Concomitant]
     Active Substance: CLOBETASOL
     Indication: Dermatitis atopic
     Dosage: UNK
  9. DIFLUCORTOLONE VALERATE [Concomitant]
     Active Substance: DIFLUCORTOLONE VALERATE
     Indication: Dermatitis atopic
     Dosage: UNK

REACTIONS (29)
  - Dermatitis atopic [Not Recovered/Not Resolved]
  - Alopecia totalis [Not Recovered/Not Resolved]
  - Fistula [Unknown]
  - Gastrointestinal disorder [Not Recovered/Not Resolved]
  - Ileal stenosis [Unknown]
  - Colitis ulcerative [Unknown]
  - Mucosal disorder [Unknown]
  - Muscle rupture [Unknown]
  - Upper gastrointestinal haemorrhage [Unknown]
  - Pruritus [Unknown]
  - Flatulence [Unknown]
  - Rash [Unknown]
  - Abdominal lymphadenopathy [Unknown]
  - Gastrooesophageal reflux disease [Unknown]
  - Alopecia [Unknown]
  - Decreased appetite [Unknown]
  - Weight decreased [Unknown]
  - Anorectal swelling [Unknown]
  - Faecal calprotectin increased [Unknown]
  - Rash [Unknown]
  - Fistula [Unknown]
  - Proctalgia [Unknown]
  - Skin disorder [Unknown]
  - Alopecia areata [Unknown]
  - Nausea [Unknown]
  - Wound [Unknown]
  - Gastritis [Unknown]
  - Anal fistula [Unknown]
  - C-reactive protein increased [Unknown]

NARRATIVE: CASE EVENT DATE: 20211001
